FAERS Safety Report 5847938-6 (Version None)
Quarter: 2008Q3

REPORT INFORMATION
  Report Type: 
  Country: None (occurrence: None)
  Receive Date: 20080818
  Receipt Date: 20080811
  Transmission Date: 20090109
  Serious: Yes (Life-Threatening)
  Sender: FDA-Public Use
  Company Number: ES-ABBOTT-08P-144-0469961-00

PATIENT
  Age: 45 Year
  Sex: Female

DRUGS (3)
  1. KALETRA [Suspect]
     Indication: ACQUIRED IMMUNODEFICIENCY SYNDROME
     Route: 048
     Dates: start: 20080521, end: 20080605
  2. BACTRIM [Suspect]
     Indication: PROPHYLAXIS
     Route: 048
     Dates: start: 20080522, end: 20080605
  3. EMTRICITABINE [Suspect]
     Indication: ACQUIRED IMMUNODEFICIENCY SYNDROME
     Dosage: 200MG/245MG
     Route: 048
     Dates: start: 20080521, end: 20080609

REACTIONS (1)
  - THROMBOCYTOPENIA [None]
